FAERS Safety Report 21279203 (Version 1)
Quarter: 2022Q3

REPORT INFORMATION
  Report Type: Report from Study
  Country: US (occurrence: US)
  Receive Date: 20220901
  Receipt Date: 20220901
  Transmission Date: 20221027
  Serious: Yes (Other)
  Sender: FDA-Public Use
  Company Number: US-TAKEDA-2022TUS060616

PATIENT
  Sex: Female
  Weight: 88.435 kg

DRUGS (26)
  1. HUMAN IMMUNOGLOBULIN G [Suspect]
     Active Substance: HUMAN IMMUNOGLOBULIN G
     Indication: Immunodeficiency common variable
     Dosage: 24 GRAM, Q2WEEKS
     Route: 058
     Dates: start: 20220807
  2. DIPHENHYDRAMINE [Concomitant]
     Active Substance: DIPHENHYDRAMINE
  3. FLAXSEED [Concomitant]
     Active Substance: FLAX SEED
  4. EPINEPHRINE [Concomitant]
     Active Substance: EPINEPHRINE
  5. FLUTICASONE PROPIONATE [Concomitant]
     Active Substance: FLUTICASONE PROPIONATE
  6. DIFLUCAN [Concomitant]
     Active Substance: FLUCONAZOLE
  7. VITAMIN E [Concomitant]
     Active Substance: .ALPHA.-TOCOPHEROL
  8. HIZENTRA [Concomitant]
     Active Substance: HUMAN IMMUNOGLOBULIN G
  9. ZANTAC [Concomitant]
     Active Substance: RANITIDINE HYDROCHLORIDE
  10. ZINC [Concomitant]
     Active Substance: ZINC
  11. ASPIRIN [Concomitant]
     Active Substance: ASPIRIN
  12. CALCIUM [Concomitant]
     Active Substance: CALCIUM
  13. ADVIL [Concomitant]
     Active Substance: IBUPROFEN
  14. JANUVIA [Concomitant]
     Active Substance: SITAGLIPTIN PHOSPHATE
  15. NEXIUM [Concomitant]
     Active Substance: ESOMEPRAZOLE MAGNESIUM
  16. AZELASTINE HYDROCHLORIDE [Concomitant]
     Active Substance: AZELASTINE HYDROCHLORIDE
  17. POTASSIUM GLUCONATE [Concomitant]
     Active Substance: POTASSIUM GLUCONATE
  18. VALSARTAN [Concomitant]
     Active Substance: VALSARTAN
  19. MAGNESIUM [Concomitant]
     Active Substance: MAGNESIUM
  20. FISH OIL [Concomitant]
     Active Substance: FISH OIL
  21. Lmx [Concomitant]
  22. LIDOCAINE [Concomitant]
     Active Substance: LIDOCAINE
  23. HYDROCHLOROTHIAZIDE\TRIAMTERENE [Concomitant]
     Active Substance: HYDROCHLOROTHIAZIDE\TRIAMTERENE
  24. BIOFREEZE [Concomitant]
     Active Substance: MENTHOL
  25. VITAMIN D3 [Concomitant]
     Active Substance: CHOLECALCIFEROL
  26. LYSINE [Concomitant]
     Active Substance: LYSINE

REACTIONS (1)
  - Cataract [Unknown]
